FAERS Safety Report 7150605-2 (Version None)
Quarter: 2010Q4

REPORT INFORMATION
  Report Type: 
  Country: None (occurrence: None)
  Receive Date: 20101210
  Receipt Date: 20101202
  Transmission Date: 20110411
  Serious: Yes (Other)
  Sender: FDA-Public Use
  Company Number: US-PFIZER INC-2010114573

PATIENT
  Sex: Female
  Weight: 89 kg

DRUGS (9)
  1. SPIRONOLACTONE [Suspect]
     Indication: OEDEMA PERIPHERAL
     Dates: start: 20100624
  2. MEDROXYPROGESTERONE (TEVA) [Suspect]
     Indication: OFF LABEL USE
     Dosage: UNK
     Dates: start: 20090722
  3. MEDROXYPROGESTERONE (TEVA) [Suspect]
     Indication: MENORRHAGIA
  4. AYGESTIN [Suspect]
     Indication: METRORRHAGIA
     Dosage: 5 MG, 2X/DAY AS NEEDED
     Dates: start: 20090908, end: 20100301
  5. AYGESTIN [Suspect]
     Dosage: FREQUENCY: 2X/DAY AS NEEDED,
     Dates: start: 20090908, end: 20100301
  6. CATAFLAM [Suspect]
     Indication: PAIN IN EXTREMITY
     Dosage: FREQUENCY: AS NEEDED,
     Dates: start: 20100405
  7. ZYRTEC [Concomitant]
     Indication: HYPERSENSITIVITY
  8. NAPROXEN [Concomitant]
     Indication: PELVIC PAIN
     Dosage: UNK
     Dates: start: 20090810
  9. FERROUS SULFATE [Concomitant]
     Indication: ANAEMIA
     Dosage: UNK
     Dates: start: 20090701, end: 20091001

REACTIONS (10)
  - ARTHRALGIA [None]
  - DRUG INEFFECTIVE [None]
  - FLUID RETENTION [None]
  - HYPERTENSION [None]
  - JOINT SWELLING [None]
  - METRORRHAGIA [None]
  - MUSCULAR WEAKNESS [None]
  - OEDEMA PERIPHERAL [None]
  - PAIN IN EXTREMITY [None]
  - PARAESTHESIA [None]
